FAERS Safety Report 23625189 (Version 4)
Quarter: 2024Q3

REPORT INFORMATION
  Report Type: Spontaneous
  Country: US (occurrence: US)
  Receive Date: 20240313
  Receipt Date: 20240809
  Transmission Date: 20241016
  Serious: No
  Sender: SANOFI AVENTIS
  Company Number: US-SA-SAC20240307000928

PATIENT
  Age: 21 Year
  Sex: Male

DRUGS (1)
  1. DUPIXENT [Suspect]
     Active Substance: DUPILUMAB
     Indication: Dermatitis atopic
     Dosage: 300 MG, QOW
     Route: 058

REACTIONS (11)
  - Eyelid rash [Unknown]
  - Pruritus [Unknown]
  - Erythema [Recovered/Resolved]
  - Ocular hyperaemia [Not Recovered/Not Resolved]
  - Urticaria [Unknown]
  - Eye swelling [Not Recovered/Not Resolved]
  - Swelling of eyelid [Unknown]
  - Rash [Unknown]
  - Oral herpes [Recovered/Resolved]
  - Dry eye [Unknown]
  - Eye pruritus [Not Recovered/Not Resolved]

NARRATIVE: CASE EVENT DATE: 20240101
